FAERS Safety Report 6494783-7 (Version None)
Quarter: 2009Q4

REPORT INFORMATION
  Report Type: 
  Country: None (occurrence: None)
  Receive Date: 20091214
  Receipt Date: 20090328
  Transmission Date: 20100525
  Serious: No
  Sender: FDA-Public Use
  Company Number: US-BRISTOL-MYERS SQUIBB COMPANY-14558993

PATIENT
  Sex: Female

DRUGS (3)
  1. ABILIFY [Suspect]
     Indication: AGITATION
     Dosage: ONE TIME DOSE
     Route: 030
     Dates: start: 20090313
  2. ATIVAN [Suspect]
     Indication: AGITATION
     Route: 030
     Dates: start: 20090313
  3. HALDOL [Suspect]
     Indication: AGITATION
     Dates: start: 20090313

REACTIONS (3)
  - BLOOD PRESSURE DECREASED [None]
  - DEHYDRATION [None]
  - DEPRESSED LEVEL OF CONSCIOUSNESS [None]
